FAERS Safety Report 13188779 (Version 1)
Quarter: 2017Q1

REPORT INFORMATION
  Report Type: Spontaneous
  Country: US (occurrence: US)
  Receive Date: 20170205
  Receipt Date: 20170205
  Transmission Date: 20170428
  Serious: No
  Sender: FDA-Public Use
  Company Number: None

PATIENT
  Age: 34 Year
  Sex: Female
  Weight: 58.5 kg

DRUGS (2)
  1. KIRKLAND SIGNATURE ALLER TEC ALLERGY [Suspect]
     Active Substance: CETIRIZINE HYDROCHLORIDE
     Indication: CYSTITIS INTERSTITIAL
     Dosage: ?          QUANTITY:1 TABLET(S);?
     Route: 048
     Dates: start: 20140101, end: 20170128
  2. ESTROGEL 3 PUMPS [Concomitant]

REACTIONS (3)
  - Scratch [None]
  - Contusion [None]
  - Pruritus [None]

NARRATIVE: CASE EVENT DATE: 20170204
